FAERS Safety Report 17316163 (Version 1)
Quarter: 2020Q1

REPORT INFORMATION
  Report Type: Spontaneous
  Country: DE (occurrence: DE)
  Receive Date: 20200124
  Receipt Date: 20200124
  Transmission Date: 20200409
  Serious: Yes (Other)
  Sender: FDA-Public Use
  Company Number: DE-MYLANLABS-2020M1007024

PATIENT
  Age: 1 Day
  Sex: Female
  Weight: 2.57 kg

DRUGS (6)
  1. MOLSIDOMIN [Suspect]
     Active Substance: MOLSIDOMINE
     Indication: CARDIOVASCULAR EVENT PROPHYLAXIS
     Dosage: 4 MILLIGRAM, QD (4 [MG/D ]),2 .6. - 39.1. GESTATIONAL WEEK
     Route: 064
  2. FOLIC ACID. [Concomitant]
     Active Substance: FOLIC ACID
     Indication: PROPHYLAXIS OF NEURAL TUBE DEFECT
     Dosage: UNK, 4.5. - 37.6. GESTATIONAL WEEK
     Route: 064
  3. CARBIMAZOLE [Suspect]
     Active Substance: CARBIMAZOLE
     Indication: HYPERTHYROIDISM
     Dosage: 5 MILLIGRAM, QD (5 [MG/D ]),0. - 39.1. GESTATIONAL WEEK
     Route: 064
     Dates: start: 20180425, end: 20190124
  4. PROGESTAN [Concomitant]
     Active Substance: PROGESTERONE
     Indication: PROPHYLAXIS OF ABORTION
     Dosage: 400 [MG/D (2X 200) ] 2 SEPARATED DOSES,4.5. - 31.1. GESTATIONAL WEEK
     Route: 064
     Dates: start: 20180528, end: 20181129
  5. CLEXANE [Concomitant]
     Active Substance: ENOXAPARIN SODIUM
     Indication: THROMBOSIS PROPHYLAXIS
     Dosage: 40 MILLIGRAM, QD (40 [MG/D ])
     Route: 064
     Dates: start: 20180425, end: 20190124
  6. LAMOTRIGINE. [Suspect]
     Active Substance: LAMOTRIGINE
     Indication: EPILEPSY
     Dosage: 50 MILLIGRAM, QD (50 [MG/D (2X25) ] 2 SEPARATED DOSES), 0. - 39.1. GESTATIONAL WEEK
     Route: 064
     Dates: start: 20180425, end: 20190124

REACTIONS (2)
  - Small for dates baby [Not Recovered/Not Resolved]
  - Foetal exposure during pregnancy [Recovered/Resolved]

NARRATIVE: CASE EVENT DATE: 20190124
